FAERS Safety Report 9943022 (Version 1)
Quarter: 2014Q1

REPORT INFORMATION
  Report Type: Report from Study
  Country: US (occurrence: US)
  Receive Date: 20140303
  Receipt Date: 20140303
  Transmission Date: 20141002
  Serious: No
  Sender: FDA-Public Use
  Company Number: US-ABBVIE-13P-163-1045754-00

PATIENT
  Age: 36 Year
  Sex: Female
  Weight: 48.12 kg

DRUGS (4)
  1. HUMIRA [Suspect]
     Indication: PSORIASIS
  2. HUMIRA [Suspect]
     Dosage: STARTED ONE WEEK AFTER INITAL DOSE
  3. ZOLOFT [Concomitant]
     Indication: DEPRESSION
  4. TRAZADONE [Concomitant]
     Indication: DEPRESSION

REACTIONS (1)
  - Psoriasis [Not Recovered/Not Resolved]
